FAERS Safety Report 20075662 (Version 1)
Quarter: 2021Q4

REPORT INFORMATION
  Report Type: Spontaneous
  Country: US (occurrence: US)
  Receive Date: 20211116
  Receipt Date: 20211116
  Transmission Date: 20220303
  Serious: Yes (Other)
  Sender: FDA-Public Use
  Company Number: US-SAMSUNG BIOEPIS-SB-2021-26727

PATIENT
  Age: 48 Year
  Sex: Male

DRUGS (1)
  1. INFLIXIMAB [Suspect]
     Active Substance: INFLIXIMAB
     Indication: Colitis ulcerative
     Dosage: UNKNOWN
     Route: 065

REACTIONS (5)
  - Tubulointerstitial nephritis [Unknown]
  - Glomerulonephritis minimal lesion [Recovering/Resolving]
  - Renal failure [Recovering/Resolving]
  - Nephrotic syndrome [Recovering/Resolving]
  - Product use issue [Unknown]
